FAERS Safety Report 9312608 (Version 1)
Quarter: 2013Q2

REPORT INFORMATION
  Report Type: Spontaneous
  Country: GB (occurrence: GB)
  Receive Date: 20130528
  Receipt Date: 20130528
  Transmission Date: 20140414
  Serious: Yes (Hospitalization)
  Sender: FDA-Public Use
  Company Number: GB-GLAXOSMITHKLINE-B0892968A

PATIENT
  Age: 66 Year
  Sex: Male

DRUGS (10)
  1. VOTRIENT [Suspect]
     Indication: METASTATIC RENAL CELL CARCINOMA
     Route: 048
     Dates: start: 20130329, end: 20130502
  2. DIFFLAM [Concomitant]
  3. GTN [Concomitant]
  4. LEVOTHYROXINE [Concomitant]
  5. OMEPRAZOLE [Concomitant]
  6. ASPIRIN [Concomitant]
  7. BISOPROLOL [Concomitant]
  8. AMITRIPTYLINE [Concomitant]
  9. VALSARTAN [Concomitant]
  10. AMLODIPINE [Concomitant]

REACTIONS (3)
  - Dyspnoea [Recovering/Resolving]
  - Exercise tolerance decreased [Unknown]
  - Insomnia [Unknown]
